FAERS Safety Report 12650840 (Version 1)
Quarter: 2016Q3

REPORT INFORMATION
  Report Type: Spontaneous
  Country: CA (occurrence: CA)
  Receive Date: 20160815
  Receipt Date: 20160815
  Transmission Date: 20161109
  Serious: No
  Sender: FDA-Public Use
  Company Number: CA-JAZZ-2015-CA-003101

PATIENT
  Sex: Male

DRUGS (13)
  1. XYREM [Suspect]
     Active Substance: SODIUM OXYBATE
     Dosage: 6 G, BID
     Route: 048
     Dates: start: 20130108, end: 20131203
  2. XYREM [Suspect]
     Active Substance: SODIUM OXYBATE
     Dosage: 6 G, BID
     Route: 048
     Dates: start: 20121123, end: 20121220
  3. XYREM [Suspect]
     Active Substance: SODIUM OXYBATE
     Dosage: 3.75 G, BID
     Route: 048
     Dates: start: 20131203, end: 20140106
  4. XYREM [Suspect]
     Active Substance: SODIUM OXYBATE
     Dosage: 6 G, BID
     Route: 048
     Dates: start: 20140106
  5. XYREM [Suspect]
     Active Substance: SODIUM OXYBATE
     Dosage: 9.75 G, TOTAL NIGHTLY DOSE
     Route: 048
     Dates: start: 20120914, end: 20120925
  6. XYREM [Suspect]
     Active Substance: SODIUM OXYBATE
     Dosage: 3 G, BID
     Route: 048
     Dates: start: 20120717, end: 20120801
  7. XYREM [Suspect]
     Active Substance: SODIUM OXYBATE
     Indication: CATAPLEXY
     Dosage: 2.25 G, BID
     Route: 048
     Dates: start: 20120626, end: 20120717
  8. XYREM [Suspect]
     Active Substance: SODIUM OXYBATE
     Dosage: 1 DF, QD (ONE DOSE PER NIGHT)
     Route: 048
  9. XYREM [Suspect]
     Active Substance: SODIUM OXYBATE
     Dosage: 3.75 G, BID
     Route: 048
     Dates: start: 20120801, end: 20120914
  10. XYREM [Suspect]
     Active Substance: SODIUM OXYBATE
     Dosage: 10.75 G, TOTAL NIGHTLY DOSE
     Route: 048
     Dates: start: 20120925, end: 20121029
  11. XYREM [Suspect]
     Active Substance: SODIUM OXYBATE
     Dosage: 11.5 G, TOTAL NIGHTLY DOSE
     Route: 048
     Dates: start: 20121029, end: 20121123
  12. XYREM [Suspect]
     Active Substance: SODIUM OXYBATE
     Dosage: 6 G, FIRST DOSE
     Route: 048
     Dates: start: 20121220, end: 20130108
  13. XYREM [Suspect]
     Active Substance: SODIUM OXYBATE
     Dosage: 5.25 G, SECOND DOSE
     Route: 048
     Dates: start: 20121220, end: 20130108

REACTIONS (2)
  - Treatment noncompliance [Unknown]
  - Wrong technique in product usage process [Unknown]
